FAERS Safety Report 11847838 (Version 1)
Quarter: 2015Q4

REPORT INFORMATION
  Report Type: Spontaneous
  Country: AT (occurrence: AT)
  Receive Date: 20151217
  Receipt Date: 20151217
  Transmission Date: 20160305
  Serious: Yes (Hospitalization, Other)
  Sender: FDA-Public Use
  Company Number: AT-ASTRAZENECA-2015SE56435

PATIENT
  Age: 56 Year
  Sex: Male
  Weight: 84 kg

DRUGS (21)
  1. MIRTAZAPINE. [Suspect]
     Active Substance: MIRTAZAPINE
     Route: 065
     Dates: start: 201412, end: 20150115
  2. TEMESTA [Concomitant]
     Active Substance: LORAZEPAM
     Route: 065
     Dates: start: 20150216, end: 20150216
  3. TEMESTA [Concomitant]
     Active Substance: LORAZEPAM
     Route: 065
     Dates: start: 20150217, end: 20150222
  4. TEMESTA [Concomitant]
     Active Substance: LORAZEPAM
     Route: 065
     Dates: start: 20150306, end: 20150308
  5. TEMESTA [Concomitant]
     Active Substance: LORAZEPAM
     Route: 065
     Dates: start: 20150223, end: 20150304
  6. TEMESTA [Concomitant]
     Active Substance: LORAZEPAM
     Route: 065
     Dates: start: 20150305, end: 20150305
  7. OMEGA 3 [Concomitant]
     Active Substance: OMEGA-3 FATTY ACIDS
     Dosage: 1X1, DAILY
  8. PANTOLOC [Concomitant]
     Active Substance: PANTOPRAZOLE SODIUM
     Dates: end: 20150223
  9. SEROQUEL [Suspect]
     Active Substance: QUETIAPINE FUMARATE
     Route: 048
     Dates: start: 20150216, end: 20150216
  10. MIRTAZAPINE. [Suspect]
     Active Substance: MIRTAZAPINE
     Route: 065
     Dates: start: 20141124, end: 201412
  11. MIRTAZAPINE. [Suspect]
     Active Substance: MIRTAZAPINE
     Route: 065
     Dates: start: 20150227
  12. MIRTAZAPINE. [Suspect]
     Active Substance: MIRTAZAPINE
     Route: 065
     Dates: start: 20150227
  13. CIPRALEX [Suspect]
     Active Substance: ESCITALOPRAM OXALATE
     Route: 048
     Dates: start: 201409
  14. MIRTAZAPINE. [Suspect]
     Active Substance: MIRTAZAPINE
     Route: 065
     Dates: start: 20150116, end: 20150215
  15. MIRTAZAPINE. [Suspect]
     Active Substance: MIRTAZAPINE
     Route: 065
     Dates: start: 20150216, end: 20150218
  16. MIRTAZAPINE. [Suspect]
     Active Substance: MIRTAZAPINE
     Route: 065
     Dates: start: 20150219, end: 20150226
  17. DIBONDRIN [Suspect]
     Active Substance: DIPHENHYDRAMINE HYDROCHLORIDE
     Route: 065
     Dates: start: 20150216
  18. ATARAX [Suspect]
     Active Substance: HYDROXYZINE\HYDROXYZINE HYDROCHLORIDE
     Route: 048
     Dates: start: 20150216
  19. NAPROXEN. [Concomitant]
     Active Substance: NAPROXEN
     Dates: end: 20150223
  20. SERACTIL [Concomitant]
     Active Substance: DEXIBUPROFEN
  21. AQUA TEARS [Concomitant]
     Dosage: ONCE DAILY

REACTIONS (3)
  - Delirium [Recovered/Resolved]
  - Blood pressure increased [Unknown]
  - Pruritus [Recovered/Resolved]

NARRATIVE: CASE EVENT DATE: 20150216
